FAERS Safety Report 15093514 (Version 2)
Quarter: 2019Q1

REPORT INFORMATION
  Report Type: Spontaneous
  Country: JP (occurrence: JP)
  Receive Date: 20180629
  Receipt Date: 20190327
  Transmission Date: 20190417
  Serious: Yes (Other)
  Sender: FDA-Public Use
  Company Number: JP-BAUSCH-BL-2018-018003

PATIENT
  Age: 59 Year
  Sex: Male

DRUGS (1)
  1. MOVIPREP [Suspect]
     Active Substance: ASCORBIC ACID\POLYETHYLENE GLYCOL 3350\POTASSIUM CHLORIDE\SODIUM ASCORBATE\SODIUM CHLORIDE\SODIUM SULFATE
     Indication: BOWEL PREPARATION
     Route: 048
     Dates: start: 20180419, end: 20180419

REACTIONS (4)
  - Abdominal distension [Unknown]
  - Volvulus [Recovered/Resolved]
  - Tenderness [Unknown]
  - Vomiting [Unknown]

NARRATIVE: CASE EVENT DATE: 20180419
